FAERS Safety Report 18897789 (Version 1)
Quarter: 2021Q1

REPORT INFORMATION
  Report Type: Spontaneous
  Country: US (occurrence: US)
  Receive Date: 20210212
  Receipt Date: 20210212
  Transmission Date: 20210420
  Serious: Yes (Disabling, Other)
  Sender: FDA-Public Use
  Company Number: None

PATIENT
  Age: 76 Year
  Sex: Male
  Weight: 59.85 kg

DRUGS (16)
  1. TRAZODONE [Concomitant]
     Active Substance: TRAZODONE HYDROCHLORIDE
  2. SIMVISTATIN [Concomitant]
     Active Substance: SIMVASTATIN
  3. GLUTAMINE [Concomitant]
     Active Substance: GLUTAMINE
  4. AMLODIPINE [Concomitant]
     Active Substance: AMLODIPINE BESYLATE
  5. PRO AIR RESPICLICK [Concomitant]
  6. LISINOPRIL. [Concomitant]
     Active Substance: LISINOPRIL
  7. METHYLPHENIDATE. [Concomitant]
     Active Substance: METHYLPHENIDATE
  8. VIT D [Concomitant]
     Active Substance: VITAMIN D NOS
  9. ZINC. [Concomitant]
     Active Substance: ZINC
  10. CHLORTHALIDONE. [Concomitant]
     Active Substance: CHLORTHALIDONE
  11. LEVOTHYROXINE. [Concomitant]
     Active Substance: LEVOTHYROXINE
  12. DOXEPIN [Concomitant]
     Active Substance: DOXEPIN
  13. CREATIN [Concomitant]
  14. METHYLPHENIDATE HCL 20 MG [Suspect]
     Active Substance: METHYLPHENIDATE HYDROCHLORIDE
     Indication: ATTENTION DEFICIT HYPERACTIVITY DISORDER
     Dosage: ?          QUANTITY:1 TABLET(S);?
     Route: 048
     Dates: start: 20201113
  15. DEXTROSE. [Concomitant]
     Active Substance: DEXTROSE
  16. LORAZEPAM. [Concomitant]
     Active Substance: LORAZEPAM

REACTIONS (9)
  - Dyspnoea [None]
  - Feeding disorder [None]
  - Head discomfort [None]
  - Product substitution issue [None]
  - Mental impairment [None]
  - Feeling abnormal [None]
  - Depression [None]
  - Fatigue [None]
  - Illness [None]

NARRATIVE: CASE EVENT DATE: 20201226
